FAERS Safety Report 6256052-X (Version None)
Quarter: 2009Q2

REPORT INFORMATION
  Report Type: 
  Country: None (occurrence: None)
  Receive Date: 20090630
  Receipt Date: 20090630
  Transmission Date: 20091009
  Serious: Yes (Hospitalization)
  Sender: FDA-Public Use
  Company Number: None

PATIENT
  Sex: Female
  Weight: 79 kg

DRUGS (3)
  1. CARBOPLATIN [Suspect]
     Dosage: 195 MG
  2. ERBITUX [Suspect]
     Dosage: 1242 MG
  3. TAXOL [Suspect]
     Dosage: 86 MG

REACTIONS (3)
  - CHEST PAIN [None]
  - DYSPNOEA [None]
  - HYPERSENSITIVITY [None]
